FAERS Safety Report 5318863-4 (Version None)
Quarter: 2007Q1

REPORT INFORMATION
  Report Type: 
  Country: None (occurrence: None)
  Receive Date: 20070201
  Receipt Date: 20061218
  Transmission Date: 20070707
  Serious: No
  Sender: FDA-Public Use
  Company Number: VNL_0346_2006

PATIENT
  Age: 73 Year
  Sex: Male
  Weight: 86.1834 kg

DRUGS (16)
  1. APOKYN [Suspect]
     Indication: PARKINSON'S DISEASE
     Dosage: 0.3 ML ONCE SC
     Route: 058
     Dates: start: 20061212
  2. APOKYN [Suspect]
     Indication: PARKINSON'S DISEASE
     Dosage: 0.2 ML ONCE SC
     Route: 058
     Dates: start: 20061130
  3. TIGAN [Concomitant]
  4. AVANDIA [Concomitant]
  5. TOPROL-XL [Concomitant]
  6. FOLIC ACID [Concomitant]
  7. ZOLOFT [Concomitant]
  8. LISINOPRIL [Concomitant]
  9. MIRAPEX [Concomitant]
  10. LOVASTATIN [Concomitant]
  11. NATAB [Concomitant]
  12. NORVASC [Concomitant]
  13. SEROQUEL [Concomitant]
  14. COMTAN [Concomitant]
  15. VANCOMYCIN [Concomitant]
  16. FLORA Q [Concomitant]

REACTIONS (3)
  - DRUG INEFFECTIVE [None]
  - PHARMACEUTICAL PRODUCT COMPLAINT [None]
  - VOMITING [None]
